FAERS Safety Report 10774906 (Version 2)
Quarter: 2015Q1

REPORT INFORMATION
  Report Type: Spontaneous
  Country: ES (occurrence: ES)
  Receive Date: 20150209
  Receipt Date: 20150217
  Transmission Date: 20150721
  Serious: Yes (Death, Other)
  Sender: FDA-Public Use
  Company Number: ES-MERCK-1501ESP010914

PATIENT
  Age: 76 Year
  Sex: Female
  Weight: 120 kg

DRUGS (11)
  1. CANCIDAS [Suspect]
     Active Substance: CASPOFUNGIN ACETATE
     Dosage: 50 MG, QD
     Route: 042
     Dates: start: 20150125, end: 20150125
  2. CLEXANE (ENOXAPARIN SODIUM) [Concomitant]
     Active Substance: ENOXAPARIN SODIUM
     Indication: PROPHYLAXIS
     Dosage: 40 MG, QD
     Dates: start: 20150105, end: 20150128
  3. URBASON [Concomitant]
     Active Substance: METHYLPREDNISOLONE
     Indication: ASTHMA
     Dosage: 40 MG, Q8H
     Route: 042
     Dates: start: 20150105, end: 20150128
  4. ATROVENT [Concomitant]
     Active Substance: IPRATROPIUM BROMIDE
     Indication: ASTHMA
     Dosage: 1 MG, Q6H
     Dates: start: 20150105, end: 20150128
  5. CANCIDAS [Suspect]
     Active Substance: CASPOFUNGIN ACETATE
     Indication: CANDIDA INFECTION
     Dosage: 70 MG, QD
     Route: 042
     Dates: start: 20150124, end: 20150124
  6. VENTOLIN [Concomitant]
     Active Substance: ALBUTEROL SULFATE
     Indication: ASTHMA
     Dosage: 10 (UNITS NOT PROVIDED (STRENGTH 2.5))  Q6H
     Dates: start: 20150105, end: 20150128
  7. CEFEPIME [Concomitant]
     Active Substance: CEFEPIME\CEFEPIME HYDROCHLORIDE
     Indication: RESPIRATORY TRACT INFECTION
     Dosage: 2 G, Q8H
     Dates: start: 20150115, end: 20150126
  8. IMIPENEM [Concomitant]
     Active Substance: IMIPENEM
     Indication: NOSOCOMIAL INFECTION
     Dosage: 1 G, Q6H
     Dates: start: 20150120, end: 20150128
  9. CEFTRIAXONE SODIUM. [Concomitant]
     Active Substance: CEFTRIAXONE SODIUM
     Indication: PNEUMONIA
  10. TEICOPLANIN [Concomitant]
     Active Substance: TEICOPLANIN
     Indication: NOSOCOMIAL INFECTION
     Dosage: 400 MG, QD
     Dates: start: 20150120, end: 20150128
  11. CEFTRIAXONE SODIUM. [Concomitant]
     Active Substance: CEFTRIAXONE SODIUM
     Indication: ASTHMA
     Dosage: 2 G, Q12H
     Dates: start: 20150105, end: 20150115

REACTIONS (2)
  - Hepatic failure [Not Recovered/Not Resolved]
  - Respiratory disorder [Fatal]

NARRATIVE: CASE EVENT DATE: 20150126
